FAERS Safety Report 17933192 (Version 1)
Quarter: 2020Q2

REPORT INFORMATION
  Report Type: Report from Study
  Country: ES (occurrence: ES)
  Receive Date: 20200623
  Receipt Date: 20200623
  Transmission Date: 20200714
  Serious: Yes (Hospitalization)
  Sender: FDA-Public Use
  Company Number: ES-PFIZER INC-2020239023

PATIENT
  Age: 3 Year
  Sex: Male
  Weight: 15 kg

DRUGS (14)
  1. NAXITAMAB [Suspect]
     Active Substance: NAXITAMAB
     Indication: NEUROBLASTOMA
     Dosage: 2.25 MG/KG (DAILY, CYCLE 6,DOSE 1)
     Route: 042
     Dates: start: 20200225, end: 20200225
  2. CEFTRIAXONE. [Concomitant]
     Active Substance: CEFTRIAXONE
     Dosage: UNK
     Dates: start: 20200306, end: 20200309
  3. GM-CSF [Suspect]
     Active Substance: GRANULOCYTE-MACROPHAGE COLONY-STIMULATING FACTOR
     Dosage: 250 UG/M2 (DAILY, CYCLE 1 DOSE 1)
     Route: 065
     Dates: start: 20191013, end: 20191013
  4. NAXITAMAB [Suspect]
     Active Substance: NAXITAMAB
     Dosage: 2.25 MG/KG (DAILY, CYCLE 1 DOSE 1 (DAILY DOSE(S): 2.25 MILLIGRAM/KILOGRAM,CYCLE 1 DOSE 1)
     Route: 042
     Dates: start: 20191008, end: 20191008
  5. NAXITAMAB [Suspect]
     Active Substance: NAXITAMAB
     Dosage: 2.25 MG/KG (DAILY, CYCLE 2  )
     Route: 042
     Dates: start: 20191104, end: 20191104
  6. IRINOTECAN HCL [Suspect]
     Active Substance: IRINOTECAN HYDROCHLORIDE
     Dosage: UNK
     Dates: start: 20200224, end: 20200224
  7. NAXITAMAB [Suspect]
     Active Substance: NAXITAMAB
     Dosage: 2.25 MG/KG (DAILY, CYCLE 6 DOSE 4)
     Route: 042
     Dates: start: 20200304, end: 20200304
  8. NAXITAMAB [Suspect]
     Active Substance: NAXITAMAB
     Dosage: 2.25 MG/KG (DAILY, CYCLE 6,DOSE 3)
     Route: 042
     Dates: start: 20200302, end: 20200302
  9. GM-CSF [Suspect]
     Active Substance: GRANULOCYTE-MACROPHAGE COLONY-STIMULATING FACTOR
     Indication: NEUROBLASTOMA
     Dosage: 250 UG/M2 (DAILY, CYCLE 6 DOSE 5)
     Route: 065
     Dates: start: 20200304, end: 20200304
  10. NAXITAMAB [Suspect]
     Active Substance: NAXITAMAB
     Dosage: 2.25 MG/KG (DAILY, CYCLE 4 )
     Route: 042
     Dates: start: 20200101, end: 20200101
  11. NAXITAMAB [Suspect]
     Active Substance: NAXITAMAB
     Dosage: 2.25 MG/KG (DAILY, CYCLE 7)
     Route: 042
     Dates: start: 20200331, end: 20200331
  12. NAXITAMAB [Suspect]
     Active Substance: NAXITAMAB
     Dosage: 2.25 MG/KG (DAILY, CYCLE 3)
     Route: 042
     Dates: start: 20191204, end: 20191204
  13. NAXITAMAB [Suspect]
     Active Substance: NAXITAMAB
     Dosage: 2.25 MG/KG (DAILY, CYCLE 5  )
     Route: 042
     Dates: start: 20200127, end: 20200127
  14. NAXITAMAB [Suspect]
     Active Substance: NAXITAMAB
     Dosage: 2.25 MG/KG (DAILY, CYCLE 6,DOSE 2)
     Route: 042
     Dates: start: 20200227, end: 20200227

REACTIONS (1)
  - Serum sickness-like reaction [Recovered/Resolved]

NARRATIVE: CASE EVENT DATE: 20200306
